FAERS Safety Report 19154512 (Version 1)
Quarter: 2021Q2

REPORT INFORMATION
  Report Type: Spontaneous
  Country: US (occurrence: US)
  Receive Date: 20210419
  Receipt Date: 20210419
  Transmission Date: 20210717
  Serious: Yes (Other)
  Sender: FDA-Public Use
  Company Number: US-FRESENIUS KABI-FK202103780

PATIENT
  Age: 6 Month
  Sex: Male

DRUGS (1)
  1. PROPOFOL (MANUFACTURER UNKNOWN) [Suspect]
     Active Substance: PROPOFOL
     Indication: SEDATION
     Dosage: UNK
     Route: 065

REACTIONS (5)
  - Condition aggravated [Recovered/Resolved]
  - Lactic acidosis [Recovered/Resolved]
  - Metabolic disorder [Recovered/Resolved]
  - Shock [Recovered/Resolved]
  - Multiple organ dysfunction syndrome [Recovered/Resolved]
